FAERS Safety Report 4983992-1 (Version None)
Quarter: 2006Q2

REPORT INFORMATION
  Report Type: 
  Country: None (occurrence: None)
  Receive Date: 20060426
  Receipt Date: 20051114
  Transmission Date: 20061013
  Serious: Yes (Hospitalization, Other)
  Sender: FDA-Public Use
  Company Number: US-MERCK-0511USA02808

PATIENT
  Age: 60 Year
  Sex: Female
  Weight: 132 kg

DRUGS (7)
  1. VIOXX [Suspect]
     Indication: SPONDYLOLISTHESIS
     Route: 048
     Dates: start: 20000101
  2. VIOXX [Suspect]
     Indication: INTERVERTEBRAL DISC PROTRUSION
     Route: 048
     Dates: start: 20000101
  3. WELLBUTRIN [Concomitant]
     Route: 065
  4. LIPITOR [Concomitant]
     Route: 065
  5. VISTARIL [Concomitant]
     Route: 065
  6. PAXIL [Concomitant]
     Route: 065
  7. GLUCOPHAGE [Concomitant]
     Route: 065

REACTIONS (13)
  - ANXIETY [None]
  - ARRHYTHMIA SUPRAVENTRICULAR [None]
  - ATRIAL FLUTTER [None]
  - CARDIAC FAILURE CONGESTIVE [None]
  - CARDIOVASCULAR DISORDER [None]
  - CEREBROVASCULAR ACCIDENT [None]
  - DEEP VEIN THROMBOSIS [None]
  - MYOCARDIAL INFARCTION [None]
  - OBSTRUCTIVE AIRWAYS DISORDER [None]
  - PULMONARY EMBOLISM [None]
  - RENAL DISORDER [None]
  - RENAL FAILURE [None]
  - THROMBOSIS [None]
